FAERS Safety Report 4280657-9 (Version None)
Quarter: 2004Q1

REPORT INFORMATION
  Report Type: 
  Country: None (occurrence: None)
  Receive Date: 20040127
  Receipt Date: 20040115
  Transmission Date: 20041129
  Serious: Yes (Other)
  Sender: FDA-Public Use
  Company Number: DE-JNJFOC-20040103565

PATIENT
  Sex: Female

DRUGS (3)
  1. RISPERDAL [Suspect]
     Indication: SCHIZOAFFECTIVE DISORDER
     Dosage: 3 MG, IN 1 DAY, ORAL
     Route: 048
  2. DYTIDE H (DYAZIDE) TABLETS [Suspect]
     Indication: HYPERTENSION
     Dosage: ORAL
     Route: 048
  3. BAYOTENSIN (NITRENDIPINE) [Suspect]
     Indication: HYPERTENSION

REACTIONS (4)
  - DRUG INTERACTION [None]
  - PLATELET COUNT DECREASED [None]
  - RED BLOOD CELL SEDIMENTATION RATE INCREASED [None]
  - WHITE BLOOD CELL COUNT DECREASED [None]
